FAERS Safety Report 9350851 (Version 1)
Quarter: 2013Q2

REPORT INFORMATION
  Report Type: Spontaneous
  Country: US (occurrence: US)
  Receive Date: 20130617
  Receipt Date: 20130617
  Transmission Date: 20140414
  Serious: Yes (Hospitalization)
  Sender: FDA-Public Use
  Company Number: US-ROCHE-1236775

PATIENT
  Age: 70 Year
  Sex: Female

DRUGS (1)
  1. VALIUM [Suspect]
     Indication: PRODUCT USED FOR UNKNOWN INDICATION
     Route: 065

REACTIONS (5)
  - Chest pain [Unknown]
  - Pulmonary thrombosis [Unknown]
  - Drug administration error [Unknown]
  - Dysgeusia [Unknown]
  - Expired drug administered [Unknown]
